FAERS Safety Report 10758963 (Version 1)
Quarter: 2015Q1

REPORT INFORMATION
  Report Type: Spontaneous
  Country: US (occurrence: None)
  Receive Date: 20150202
  Receipt Date: 20150202
  Transmission Date: 20150721
  Serious: Yes (Hospitalization, Other)
  Sender: FDA-Public Use
  Company Number: None

PATIENT
  Age: 1 Year
  Sex: Female
  Weight: 12.25 kg

DRUGS (1)
  1. TAMIFLU [Suspect]
     Active Substance: OSELTAMIVIR PHOSPHATE
     Indication: INFLUENZA
     Dosage: 1 TSP 2 TIMES A DAY
     Route: 048
     Dates: start: 20150116, end: 20150118

REACTIONS (6)
  - Pyrexia [None]
  - Urticaria [None]
  - Dermatitis diaper [None]
  - Diarrhoea [None]
  - Oral candidiasis [None]
  - Dyspnoea [None]

NARRATIVE: CASE EVENT DATE: 20150116
